FAERS Safety Report 16872863 (Version 1)
Quarter: 2019Q4

REPORT INFORMATION
  Report Type: Spontaneous
  Country: US (occurrence: US)
  Receive Date: 20191001
  Receipt Date: 20191001
  Transmission Date: 20200122
  Serious: Yes (Hospitalization)
  Sender: FDA-Public Use
  Company Number: None

PATIENT
  Age: 94 Year
  Sex: Female
  Weight: 73.9 kg

DRUGS (1)
  1. SULFAMETHOXAZOLE/TRIMETHOPRIM DS TABLETS [Suspect]
     Active Substance: SULFAMETHOXAZOLE\TRIMETHOPRIM
     Indication: SKIN ULCER
     Route: 048
     Dates: start: 20190923, end: 20190930

REACTIONS (2)
  - Stevens-Johnson syndrome [None]
  - Skin ulcer [None]

NARRATIVE: CASE EVENT DATE: 20190930
